FAERS Safety Report 13672734 (Version 1)
Quarter: 2017Q2

REPORT INFORMATION
  Report Type: Report from Study
  Country: US (occurrence: IN)
  Receive Date: 20170621
  Receipt Date: 20170621
  Transmission Date: 20170830
  Serious: Yes (Hospitalization)
  Sender: FDA-Public Use
  Company Number: US-SUNOVION-2017SUN002536

PATIENT
  Age: 80 Year
  Sex: Male
  Weight: 50 kg

DRUGS (8)
  1. INDACATEROL AND GLYCOPYRROLATE [Suspect]
     Active Substance: GLYCOPYRROLATE\INDACATEROL MALEATE
     Indication: CHRONIC OBSTRUCTIVE PULMONARY DISEASE
     Dosage: 1 DF (GLYCOPYRRONIUM BROMIDE 50 UG/ INDACATEROL MALEATE 110 UG), QD
     Route: 055
     Dates: start: 20170419
  2. BUDECORT [Concomitant]
     Active Substance: BUDESONIDE
     Dosage: UNK
     Dates: start: 20170603, end: 20170608
  3. MEDROL [Concomitant]
     Active Substance: METHYLPREDNISOLONE
     Dosage: UNK
     Dates: start: 20170605, end: 20170608
  4. LASIX [Concomitant]
     Active Substance: FUROSEMIDE
     Indication: OEDEMA
     Dosage: 40 MG, UNK
  5. LUPITUSS [Concomitant]
     Dosage: UNK
     Dates: start: 20170605
  6. URIMAX [Concomitant]
     Active Substance: TAMSULOSIN HYDROCHLORIDE
     Dosage: UNK
     Dates: start: 20170607
  7. DUOLIN [Concomitant]
     Dosage: UNK
     Dates: start: 20170603
  8. SOLU-MEDROL [Concomitant]
     Active Substance: METHYLPREDNISOLONE SODIUM SUCCINATE
     Dosage: UNK
     Dates: start: 20170604, end: 20170605

REACTIONS (19)
  - Dyspnoea [Recovered/Resolved]
  - Hepatic steatosis [Recovered/Resolved]
  - Lymphocyte percentage decreased [Unknown]
  - Inflammation [Unknown]
  - Blood pressure increased [Unknown]
  - Infection [Unknown]
  - Prostatomegaly [Recovered/Resolved]
  - Haematocrit decreased [Unknown]
  - Bacterial infection [Unknown]
  - Nephropathy [Recovered/Resolved]
  - Hyperchlorhydria [Unknown]
  - Chronic obstructive pulmonary disease [Recovered/Resolved]
  - Blood creatinine increased [Unknown]
  - Oedema [Unknown]
  - Urine output decreased [Recovered/Resolved]
  - Renal cyst [Recovered/Resolved]
  - White blood cell count increased [Unknown]
  - Neutrophil percentage increased [Unknown]
  - Swelling [Unknown]

NARRATIVE: CASE EVENT DATE: 20170603
